FAERS Safety Report 14555846 (Version 1)
Quarter: 2018Q1

REPORT INFORMATION
  Report Type: Spontaneous
  Country: US (occurrence: US)
  Receive Date: 20180221
  Receipt Date: 20180221
  Transmission Date: 20180509
  Serious: Yes (Hospitalization)
  Sender: FDA-Public Use
  Company Number: US-ROCHE-2071452

PATIENT
  Sex: Female

DRUGS (1)
  1. ACTEMRA [Suspect]
     Active Substance: TOCILIZUMAB
     Indication: RHEUMATOID ARTHRITIS
     Route: 042
     Dates: start: 201712, end: 20180110

REACTIONS (6)
  - Anaphylactic shock [Recovered/Resolved]
  - Hypotension [Unknown]
  - Dyspnoea [Unknown]
  - Paraesthesia [Unknown]
  - Hyperhidrosis [Unknown]
  - Hypoxia [Unknown]

NARRATIVE: CASE EVENT DATE: 20180110
